FAERS Safety Report 5121549-2 (Version None)
Quarter: 2006Q4

REPORT INFORMATION
  Report Type: 
  Country: None (occurrence: None)
  Receive Date: 20061006
  Receipt Date: 20060925
  Transmission Date: 20070319
  Serious: Yes (Congenital Anomaly)
  Sender: FDA-Public Use
  Company Number: PHBS2006NL14669

PATIENT
  Sex: Female

DRUGS (1)
  1. TEGRETOL [Suspect]
     Dosage: MATERNAL DOSE 200 MG/TID
     Route: 064

REACTIONS (3)
  - CONGENITAL MUSCULOSKELETAL ANOMALY [None]
  - FOOT DEFORMITY [None]
  - TOOTH DEVELOPMENT DISORDER [None]
